FAERS Safety Report 26043625 (Version 1)
Quarter: 2025Q4

REPORT INFORMATION
  Report Type: Spontaneous
  Country: US (occurrence: US)
  Receive Date: 20251113
  Receipt Date: 20251113
  Transmission Date: 20260117
  Serious: Yes (Life-Threatening, Hospitalization, Other)
  Sender: Kenvue
  Company Number: US-KENVUE-20251101889

PATIENT
  Age: 60 Year
  Sex: Female

DRUGS (2)
  1. ACETAMINOPHEN [Suspect]
     Active Substance: ACETAMINOPHEN
     Indication: Product used for unknown indication
     Route: 048
  2. VORTIOXETINE [Suspect]
     Active Substance: VORTIOXETINE
     Indication: Product used for unknown indication
     Route: 048

REACTIONS (9)
  - Suicide attempt [Unknown]
  - Cardiac arrest [Unknown]
  - Generalised tonic-clonic seizure [Recovered/Resolved]
  - Ventricular fibrillation [Unknown]
  - Electrocardiogram QRS complex prolonged [Unknown]
  - Electrocardiogram QT prolonged [Unknown]
  - Intentional product use issue [Unknown]
  - Blood bicarbonate decreased [Unknown]
  - Mental status changes [Recovered/Resolved]
